FAERS Safety Report 24022561 (Version 2)
Quarter: 2024Q3

REPORT INFORMATION
  Report Type: Report from Study
  Country: CA (occurrence: CA)
  Receive Date: 20240627
  Receipt Date: 20240710
  Transmission Date: 20241016
  Serious: No
  Sender: ROCHE
  Company Number: CA-ROCHE-3363675

PATIENT
  Sex: Male

DRUGS (1)
  1. ALECTINIB [Suspect]
     Active Substance: ALECTINIB
     Indication: Non-small cell lung cancer metastatic
     Dosage: ALECENSARO 150 MG 4 CAPS?DRUG END DATE WAS 2023.
     Route: 048
     Dates: start: 20230504, end: 2023

REACTIONS (1)
  - Dyspnoea [Unknown]
